FAERS Safety Report 9067527 (Version 1)
Quarter: 2013Q1

REPORT INFORMATION
  Report Type: Report from Study
  Country: US (occurrence: US)
  Receive Date: 20130131
  Receipt Date: 20130131
  Transmission Date: 20140127
  Serious: No
  Sender: FDA-Public Use
  Company Number: US-ABBOTT-12P-163-1007942-00

PATIENT
  Age: 32 Year
  Sex: Female

DRUGS (1)
  1. HUMIRA [Suspect]
     Indication: CROHN^S DISEASE
     Dates: start: 20120910, end: 20121105

REACTIONS (5)
  - Fatigue [Not Recovered/Not Resolved]
  - Menstruation irregular [Unknown]
  - Affect lability [Unknown]
  - Nervousness [Unknown]
  - Gait disturbance [Unknown]
